FAERS Safety Report 4287006-0 (Version None)
Quarter: 2004Q1

REPORT INFORMATION
  Report Type: 
  Country: None (occurrence: None)
  Receive Date: 20040205
  Receipt Date: 20040116
  Transmission Date: 20041129
  Serious: Yes (Other)
  Sender: FDA-Public Use
  Company Number: USA040156893

PATIENT
  Age: 87 Year
  Sex: Female
  Weight: 69 kg

DRUGS (18)
  1. FORTEO [Suspect]
     Dates: start: 20031218
  2. ASCORBIC ACID [Concomitant]
  3. AMITRIPTYLINE [Concomitant]
  4. ASPIRIN [Concomitant]
  5. CALCIUM CARBONATE [Concomitant]
  6. COLACE (DOCUSATE SODIUM) [Concomitant]
  7. GABAPENTIN [Concomitant]
  8. HYDROCHLOROTHIAZIDE [Concomitant]
  9. PREVACID [Concomitant]
  10. LISINOPRIL [Concomitant]
  11. METAMUCIL-2 [Concomitant]
  12. VITAMIN CAP [Concomitant]
  13. NABUMETONE [Concomitant]
  14. OXYCODONE HCL [Concomitant]
  15. POTASSIUM CHLORIDE [Concomitant]
  16. VERAPAMIL [Concomitant]
  17. ATIVAN [Concomitant]
  18. SPIRONOLACTONE [Concomitant]

REACTIONS (3)
  - DELUSION [None]
  - PARANOIA [None]
  - PHARMACEUTICAL PRODUCT COMPLAINT [None]
